FAERS Safety Report 4457425-8 (Version None)
Quarter: 2004Q3

REPORT INFORMATION
  Report Type: 
  Country: None (occurrence: None)
  Receive Date: 20040921
  Receipt Date: 20040908
  Transmission Date: 20050211
  Serious: No
  Sender: FDA-Public Use
  Company Number: D0044648A

PATIENT
  Age: 34 Year
  Sex: Female
  Weight: 69.8539 kg

DRUGS (4)
  1. PAXIL [Suspect]
     Dosage: 20 TABLET/ SINGLE DOSE/ ORAL
     Route: 048
  2. LORAZEPAM [Suspect]
     Dosage: 30 TABLET/ SINGLE DOSE/ ORAL
     Route: 048
  3. DICLOFENAC SODIUM [Suspect]
     Dosage: 14 TABLET/ SINGLE DOSE/ ORAL
     Route: 048
  4. ETHANOL EMULSION (ALCOHOL) [Suspect]
     Dosage: 3 BOTTLE/ SINGLE DOSE/ ORAL
     Route: 048

REACTIONS (3)
  - MULTIPLE DRUG OVERDOSE INTENTIONAL [None]
  - SPEECH DISORDER [None]
  - SUICIDE ATTEMPT [None]
